FAERS Safety Report 15812145 (Version 2)
Quarter: 2019Q4

REPORT INFORMATION
  Report Type: Report from Study
  Country: JP (occurrence: JP)
  Receive Date: 20190111
  Receipt Date: 20191223
  Transmission Date: 20200122
  Serious: Yes (Hospitalization)
  Sender: FDA-Public Use
  Company Number: JP-DSJP-DSJ-2019-100335AA

PATIENT

DRUGS (12)
  1. BISOPROLOL                         /00802602/ [Suspect]
     Active Substance: BISOPROLOL
     Dosage: UNK
     Route: 048
  2. TAKECAB [Concomitant]
     Active Substance: VONOPRAZAN FUMURATE
     Dosage: 10MG/DAY
     Route: 048
  3. SPIRONOLACTONE. [Concomitant]
     Active Substance: SPIRONOLACTONE
     Dosage: UNK
     Route: 048
  4. PRASUGREL. [Suspect]
     Active Substance: PRASUGREL
     Indication: ANGINA PECTORIS
     Dosage: 3.75 MG, QD
     Route: 048
  5. OLMETEC OD [Suspect]
     Active Substance: OLMESARTAN MEDOXOMIL
     Indication: HYPERTENSION
     Dosage: UNK
     Route: 048
  6. BAYASPIRIN [Concomitant]
     Active Substance: ASPIRIN
     Dosage: 100MG/DAY
     Route: 048
     Dates: end: 20181126
  7. HEPARIN [Concomitant]
     Active Substance: HEPARIN SODIUM
     Dosage: 2000 IU
     Route: 065
  8. ADALAT [Suspect]
     Active Substance: NIFEDIPINE
     Dosage: UNK
     Route: 048
  9. HEPARIN [Concomitant]
     Active Substance: HEPARIN SODIUM
     Dosage: 5000 IU
     Route: 065
  10. ATORVASTATIN                       /01326102/ [Concomitant]
     Active Substance: ATORVASTATIN
     Dosage: UNK
     Route: 048
  11. BROTIZOLAM [Concomitant]
     Active Substance: BROTIZOLAM
     Dosage: UNK
     Route: 048
  12. BAYASPIRIN [Concomitant]
     Active Substance: ASPIRIN
     Dosage: 200MG/DAY
     Route: 048

REACTIONS (1)
  - Syncope [Recovering/Resolving]

NARRATIVE: CASE EVENT DATE: 20181110
